FAERS Safety Report 9173744 (Version 2)
Quarter: 2013Q2

REPORT INFORMATION
  Report Type: Report from Study
  Country: CA (occurrence: CA)
  Receive Date: 20130320
  Receipt Date: 20130422
  Transmission Date: 20140414
  Serious: Yes (Hospitalization)
  Sender: FDA-Public Use
  Company Number: CA-JNJFOC-20130305392

PATIENT
  Age: 63 Year
  Sex: Male
  Weight: 73 kg

DRUGS (7)
  1. REMICADE [Suspect]
     Indication: COLITIS ULCERATIVE
     Route: 042
     Dates: start: 201202, end: 20130411
  2. NEUPOGEN [Concomitant]
     Dosage: FOR 10 DAYS
     Route: 065
     Dates: end: 201302
  3. FOLIC ACID [Concomitant]
     Route: 065
  4. IMURAN [Concomitant]
     Route: 065
     Dates: end: 20130210
  5. METHOTREXATE [Concomitant]
     Route: 065
     Dates: start: 20130205
  6. PREDNISONE [Concomitant]
     Dosage: 1
     Route: 065
  7. ANTIBIOTICS [Concomitant]
     Route: 065
     Dates: end: 201302

REACTIONS (4)
  - Arthropathy [Unknown]
  - Vomiting [Recovered/Resolved]
  - Haemoglobin decreased [Unknown]
  - Fatigue [Recovered/Resolved]
